FAERS Safety Report 5454646-2 (Version None)
Quarter: 2007Q3

REPORT INFORMATION
  Report Type: 
  Country: None (occurrence: None)
  Receive Date: 20070917
  Receipt Date: 20060802
  Transmission Date: 20080115
  Serious: No
  Sender: FDA-Public Use
  Company Number: US-ASTRAZENECA-2006UW15499

PATIENT
  Age: 44 Year
  Sex: Male
  Weight: 68 kg

DRUGS (4)
  1. SEROQUEL [Suspect]
     Indication: BIPOLAR DISORDER
     Dosage: 600MG OR PLACEBO
     Route: 048
     Dates: start: 20050101, end: 20060101
  2. SEROQUEL [Suspect]
     Indication: OBSESSIVE-COMPULSIVE DISORDER
     Dosage: 600MG OR PLACEBO
     Route: 048
     Dates: start: 20050101, end: 20060101
  3. DEPAKOTE [Concomitant]
  4. ZOLOFT [Concomitant]

REACTIONS (5)
  - INJURY [None]
  - LIGAMENT INJURY [None]
  - MANIA [None]
  - SOMNOLENCE [None]
  - WEIGHT INCREASED [None]
